FAERS Safety Report 5372433-0 (Version None)
Quarter: 2007Q2

REPORT INFORMATION
  Report Type: 
  Country: None (occurrence: None)
  Receive Date: 20070615
  Receipt Date: 20070227
  Transmission Date: 20071010
  Serious: Yes (Other)
  Sender: FDA-Public Use
  Company Number: 200710481US

PATIENT
  Age: 65 Year
  Sex: Female

DRUGS (10)
  1. LANTUS [Suspect]
     Indication: DIABETES MELLITUS INSULIN-DEPENDENT
     Dosage: 17 U QPM
     Dates: start: 20040101
  2. LANTUS [Suspect]
     Indication: DIABETES MELLITUS INSULIN-DEPENDENT
     Dosage: 16 U
     Dates: start: 20070117
  3. LANTUS [Suspect]
     Indication: DIABETES MELLITUS INSULIN-DEPENDENT
     Dates: start: 20070118
  4. OPTICLIK PEN [Suspect]
     Indication: DIABETES MELLITUS INSULIN-DEPENDENT
  5. PHENOBARBITAL TAB [Suspect]
     Dosage: 32.4 MG
  6. NOVOLOG [Concomitant]
  7. PHENYTOIN (DILANTIN /00017401/) [Concomitant]
  8. LEVOTHYROXINE SODIUM [Concomitant]
  9. LOVASTATIN [Concomitant]
  10. LISINOPRIL [Concomitant]

REACTIONS (6)
  - BLOOD GLUCOSE INCREASED [None]
  - EXPIRED DRUG ADMINISTERED [None]
  - HYPERGLYCAEMIA [None]
  - HYPERHIDROSIS [None]
  - HYPOGLYCAEMIA [None]
  - SLEEP DISORDER [None]
